FAERS Safety Report 6069001-4 (Version None)
Quarter: 2009Q1

REPORT INFORMATION
  Report Type: 
  Country: None (occurrence: None)
  Receive Date: 20090206
  Receipt Date: 20090130
  Transmission Date: 20090719
  Serious: Yes (Other)
  Sender: FDA-Public Use
  Company Number: US-ELI_LILLY_AND_COMPANY-US200902000138

PATIENT
  Sex: Female
  Weight: 149.21 kg

DRUGS (21)
  1. BYETTA [Suspect]
     Indication: TYPE 2 DIABETES MELLITUS
     Dosage: 5 UG, 2/D
     Route: 058
     Dates: start: 20080101, end: 20080101
  2. BYETTA [Suspect]
     Dosage: 10 UG, 2/D
     Route: 058
     Dates: start: 20080101, end: 20080101
  3. METFORMIN                          /00082701/ [Concomitant]
     Indication: TYPE 2 DIABETES MELLITUS
     Dosage: UNK, UNKNOWN
     Dates: end: 20081001
  4. METFORMIN                          /00082701/ [Concomitant]
     Dosage: UNK, UNKNOWN
     Dates: start: 20081001, end: 20090101
  5. COREG [Concomitant]
     Indication: CARDIAC FAILURE CONGESTIVE
     Dosage: 80 MG, 2/D
     Route: 048
     Dates: end: 20090101
  6. COREG [Concomitant]
     Dosage: 40 MG, 2/D
     Route: 048
     Dates: start: 20090101
  7. SYNTHROID [Concomitant]
     Dosage: 100 UG, DAILY (1/D)
  8. SPIRONOLACTONE [Concomitant]
     Indication: DIURETIC THERAPY
     Dosage: 100 MG, DAILY (1/D)
     Route: 048
  9. LASIX [Concomitant]
     Indication: DIURETIC THERAPY
     Dosage: 80 MG, 2/D
     Route: 048
  10. VITAMIN D [Concomitant]
     Dosage: UNK, WEEKLY (1/W)
     Route: 051
  11. CYMBALTA [Concomitant]
     Dosage: 60 MG, DAILY (1/D)
     Route: 048
  12. POTASSIUM                          /00031402/ [Concomitant]
     Dosage: 20 MEQ, 2/D
     Route: 048
  13. ZOCOR [Concomitant]
     Dosage: 20 MG, DAILY (1/D)
     Route: 048
  14. METOLAZONE [Concomitant]
     Indication: CARDIAC FAILURE CONGESTIVE
     Dosage: UNK, AS NEEDED
  15. LANTUS [Concomitant]
     Dosage: 80 U, 2/D
     Route: 058
  16. HUMALOG                                 /GFR/ [Concomitant]
     Dosage: 60 U, EACH MORNING
     Route: 058
  17. HUMALOG                                 /GFR/ [Concomitant]
     Dosage: 50 U, OTHER
     Route: 058
  18. HUMALOG                                 /GFR/ [Concomitant]
     Dosage: 60 U, EACH EVENING
     Route: 058
  19. HUMALOG                                 /GFR/ [Concomitant]
     Dosage: UNK, AS NEEDED
  20. ACTOS [Concomitant]
     Dosage: UNK, UNKNOWN
     Dates: end: 20081001
  21. SYMLIN [Concomitant]
     Dosage: UNK, UNKNOWN
     Dates: start: 20081230, end: 20090119

REACTIONS (11)
  - CARDIAC FAILURE CONGESTIVE [None]
  - DECREASED APPETITE [None]
  - DIARRHOEA [None]
  - ERYTHEMA [None]
  - NAUSEA [None]
  - OCULAR HYPERAEMIA [None]
  - PHOTOPHOBIA [None]
  - SINUSITIS [None]
  - VISUAL ACUITY REDUCED [None]
  - VOMITING [None]
  - WEIGHT INCREASED [None]
